FAERS Safety Report 6474596-2 (Version None)
Quarter: 2009Q4

REPORT INFORMATION
  Report Type: 
  Country: None (occurrence: None)
  Receive Date: 20091204
  Receipt Date: 20090504
  Transmission Date: 20100525
  Serious: Yes (Hospitalization)
  Sender: FDA-Public Use
  Company Number: FR-ELI_LILLY_AND_COMPANY-FR200901003212

PATIENT
  Age: 71 Year
  Sex: Female

DRUGS (2)
  1. FORTEO [Suspect]
     Indication: OSTEOPOROTIC FRACTURE
     Dosage: 20 UG, DAILY (1/D)
     Route: 058
     Dates: start: 20080221
  2. CALTRATE + VITAMIN D [Concomitant]
     Dosage: 2 D/F, DAILY (1/D)
     Dates: start: 20080221

REACTIONS (2)
  - PELVIC FRACTURE [None]
  - UPPER LIMB FRACTURE [None]
